FAERS Safety Report 10756103 (Version 1)
Quarter: 2015Q1

REPORT INFORMATION
  Report Type: Spontaneous
  Country: FI (occurrence: FI)
  Receive Date: 20150202
  Receipt Date: 20150202
  Transmission Date: 20150721
  Serious: Yes (Other)
  Sender: FDA-Public Use
  Company Number: FI-PFIZER INC-2015034188

PATIENT
  Age: 40 Year
  Sex: Male

DRUGS (6)
  1. LYRICA [Suspect]
     Active Substance: PREGABALIN
     Dosage: 300 MG, 3X/DAY
  2. BUPRENORPHINE HYDROCHLORIDE. [Suspect]
     Active Substance: BUPRENORPHINE HYDROCHLORIDE
     Dosage: 0.2 MGX5
  3. TENOX [Suspect]
     Active Substance: TEMAZEPAM
     Dosage: 20 MGX1-2
  4. SIRDALUD [Suspect]
     Active Substance: TIZANIDINE
     Dosage: 4 MG, 2X/DAY IF NEEDED
  5. NORSPAN [Suspect]
     Active Substance: BUPRENORPHINE
     Dosage: 40 MICROG/H
  6. STESOLID [Suspect]
     Active Substance: DIAZEPAM
     Dosage: 10 MG, 2+1 1/2+1

REACTIONS (1)
  - Drug abuse [Unknown]
